FAERS Safety Report 6060975-4 (Version None)
Quarter: 2009Q1

REPORT INFORMATION
  Report Type: 
  Country: None (occurrence: None)
  Receive Date: 20090129
  Receipt Date: 20090129
  Transmission Date: 20090719
  Serious: Yes (Hospitalization)
  Sender: FDA-Public Use
  Company Number: None

PATIENT
  Age: 61 Year
  Sex: Male
  Weight: 79 kg

DRUGS (3)
  1. WARFARIN SODIUM [Suspect]
     Indication: DEEP VEIN THROMBOSIS
     Dates: start: 20081029, end: 20090120
  2. WARFARIN SODIUM [Suspect]
     Indication: HYPERLIPIDAEMIA
     Dates: start: 20081029, end: 20090120
  3. ROSUVASTATIN [Suspect]
     Dosage: 10 MG EVERY DAY PO
     Route: 048
     Dates: start: 20071121

REACTIONS (4)
  - GASTRIC HAEMORRHAGE [None]
  - HAEMORRHAGE [None]
  - HEPATIC ENZYME ABNORMAL [None]
  - INTERNATIONAL NORMALISED RATIO ABNORMAL [None]
